FAERS Safety Report 7587958-7 (Version None)
Quarter: 2011Q3

REPORT INFORMATION
  Report Type: 
  Country: None (occurrence: None)
  Receive Date: 20110705
  Receipt Date: 20110628
  Transmission Date: 20111222
  Serious: Yes (Other)
  Sender: FDA-Public Use
  Company Number: US-PFIZER INC-2011136535

PATIENT
  Sex: Female
  Weight: 81.633 kg

DRUGS (1)
  1. CHANTIX [Suspect]
     Dosage: UNK
     Route: 048
     Dates: start: 20110618, end: 20110619

REACTIONS (5)
  - TREMOR [None]
  - MALAISE [None]
  - MYOCARDIAL INFARCTION [None]
  - DYSPNOEA [None]
  - HEART RATE INCREASED [None]
